FAERS Safety Report 8674464 (Version 2)
Quarter: 2013Q1

REPORT INFORMATION
  Report Type: Report from Study
  Country: GB (occurrence: GB)
  Receive Date: 20120720
  Receipt Date: 20130125
  Transmission Date: 20140127
  Serious: Yes (Death, Hospitalization, Other)
  Sender: FDA-Public Use
  Company Number: GB-ROCHE-1089269

PATIENT
  Sex: Female

DRUGS (2)
  1. RITUXIMAB [Suspect]
     Indication: RHEUMATOID ARTHRITIS
     Dosage: LAST DOSE PRIOR TO SAE: 02/AUG/2011
     Route: 065
     Dates: start: 20090710
  2. METHOTREXATE [Concomitant]

REACTIONS (5)
  - Myocardial ischaemia [Fatal]
  - Left ventricular failure [Fatal]
  - Cachexia [Unknown]
  - Dementia [Unknown]
  - Urinary tract infection [Unknown]
